FAERS Safety Report 15370197 (Version 2)
Quarter: 2018Q3

REPORT INFORMATION
  Report Type: Spontaneous
  Country: ES (occurrence: ES)
  Receive Date: 20180911
  Receipt Date: 20180913
  Transmission Date: 20181010
  Serious: Yes (Death, Other)
  Sender: FDA-Public Use
  Company Number: ES-PFIZER INC-2018360590

PATIENT
  Age: 67 Year
  Sex: Female

DRUGS (8)
  1. LIOTHYRONINE [Concomitant]
     Active Substance: LIOTHYRONINE
     Dosage: 150 UG, 1X/DAY
     Dates: start: 2015, end: 201510
  2. METHIMAZOLE. [Concomitant]
     Active Substance: METHIMAZOLE
     Dosage: 15 MG, 1X/DAY
     Dates: start: 2015
  3. METHIMAZOLE. [Concomitant]
     Active Substance: METHIMAZOLE
     Dosage: 45 MG, 1X/DAY
     Dates: start: 2015
  4. VITAMIN D [Concomitant]
     Active Substance: CHOLECALCIFEROL
     Dosage: UNK
  5. LIOTHYRONINE [Concomitant]
     Active Substance: LIOTHYRONINE
     Dosage: 25 UG, 3X/DAY
     Dates: start: 2015
  6. DOXORUBICIN HCL [Suspect]
     Active Substance: DOXORUBICIN HYDROCHLORIDE
     Indication: BREAST CANCER METASTATIC
     Dosage: UNK, CYCLIC (SECOND CYCLE)
     Dates: start: 201509, end: 201510
  7. BISOPROLOL [Concomitant]
     Active Substance: BISOPROLOL
     Dosage: UNK
  8. LIOTHYRONINE [Concomitant]
     Active Substance: LIOTHYRONINE
     Dosage: 6.25 UG, 3X/DAY
     Dates: start: 2015, end: 201501

REACTIONS (1)
  - Infusion related reaction [Unknown]

NARRATIVE: CASE EVENT DATE: 201510
